FAERS Safety Report 11424160 (Version 3)
Quarter: 2015Q4

REPORT INFORMATION
  Report Type: Other
  Country: JP (occurrence: JP)
  Receive Date: 20150827
  Receipt Date: 20151022
  Transmission Date: 20160304
  Serious: Yes (Other)
  Sender: FDA-Public Use
  Company Number: JP-GUERBET LLC-1041429

PATIENT
  Age: 78 Year
  Sex: Male

DRUGS (1)
  1. LIPIODOL [Suspect]
     Active Substance: ETHIODIZED OIL
     Indication: TRANSCATHETER ARTERIAL CHEMOEMBOLISATION
     Route: 013
     Dates: start: 20140612, end: 20140612

REACTIONS (1)
  - Jaundice cholestatic [Recovering/Resolving]
